FAERS Safety Report 26126345 (Version 2)
Quarter: 2025Q4

REPORT INFORMATION
  Report Type: Other
  Country: CN (occurrence: CN)
  Receive Date: 20251205
  Receipt Date: 20251212
  Transmission Date: 20260117
  Serious: Yes (Other)
  Sender: INCYTE
  Company Number: CN-002147023-NVSC2025CN185566

PATIENT
  Age: 68 Year
  Weight: 45 kg

DRUGS (1)
  1. RUXOLITINIB [Suspect]
     Active Substance: RUXOLITINIB
     Indication: Neoplasm
     Dosage: 15 MG, BID

REACTIONS (1)
  - Platelet count decreased [Recovering/Resolving]
